FAERS Safety Report 13741880 (Version 1)
Quarter: 2017Q3

REPORT INFORMATION
  Report Type: Spontaneous
  Country: US (occurrence: US)
  Receive Date: 20170711
  Receipt Date: 20170711
  Transmission Date: 20171127
  Serious: No
  Sender: FDA-Public Use
  Company Number: US-PFIZER INC-2017300129

PATIENT
  Age: 62 Year
  Sex: Male
  Weight: 72 kg

DRUGS (1)
  1. VIAGRA [Suspect]
     Active Substance: SILDENAFIL CITRATE
     Indication: ERECTILE DYSFUNCTION
     Dosage: 100 MG, AS NEEDED (MAYBE TWICE A WEEK)
     Route: 048

REACTIONS (2)
  - Cyanopsia [Unknown]
  - Drug effect incomplete [Unknown]
